FAERS Safety Report 11143676 (Version 2)
Quarter: 2017Q1

REPORT INFORMATION
  Report Type: Spontaneous
  Country: US (occurrence: US)
  Receive Date: 20150526
  Receipt Date: 20170103
  Transmission Date: 20170428
  Serious: No
  Sender: FDA-Public Use
  Company Number: US-DRREDDYS-USA/USA/15/0047129

PATIENT
  Age: 2 Week
  Sex: Female

DRUGS (1)
  1. SILDENAFIL. [Suspect]
     Active Substance: SILDENAFIL
     Indication: VASCULAR MALFORMATION
     Route: 065

REACTIONS (3)
  - Therapeutic response decreased [Unknown]
  - Hyperbilirubinaemia [Recovered/Resolved]
  - Diarrhoea [Recovered/Resolved]
